FAERS Safety Report 7281601-2 (Version None)
Quarter: 2011Q1

REPORT INFORMATION
  Report Type: 
  Country: None (occurrence: None)
  Receive Date: 20110208
  Receipt Date: 20110203
  Transmission Date: 20110831
  Serious: Yes (Death, Life-Threatening, Hospitalization, Other)
  Sender: FDA-Public Use
  Company Number: PHHY2011BR08420

PATIENT
  Sex: Male
  Weight: 65 kg

DRUGS (7)
  1. FOLIC ACID [Concomitant]
     Dosage: UNK
     Dates: end: 20101223
  2. DOFILIN [Concomitant]
     Dosage: UNK
     Dates: end: 20101223
  3. CATAFLAM [Suspect]
     Indication: FACIAL BONES FRACTURE
     Dosage: UNK
     Route: 048
  4. LIPITOR [Suspect]
     Dosage: 40 MG, QD
     Route: 048
     Dates: start: 20091225, end: 20101223
  5. CLOPIDOGREL BISULFATE [Concomitant]
     Dosage: UNK
     Dates: start: 20090101, end: 20101223
  6. METFORMIN HCL [Concomitant]
     Dosage: UNK
     Dates: start: 20060101, end: 20101223
  7. SUPRADYN [Concomitant]
     Dosage: UNK
     Dates: start: 20060101, end: 20101223

REACTIONS (6)
  - CARDIAC ARREST [None]
  - HAEMORRHAGE [None]
  - HAEMATEMESIS [None]
  - COMA [None]
  - FEELING ABNORMAL [None]
  - PERFORATED ULCER [None]
